FAERS Safety Report 7042433-3 (Version None)
Quarter: 2010Q4

REPORT INFORMATION
  Report Type: 
  Country: None (occurrence: None)
  Receive Date: 20101013
  Receipt Date: 20091222
  Transmission Date: 20110411
  Serious: No
  Sender: FDA-Public Use
  Company Number: US-ASTRAZENECA-2009SE33164

PATIENT
  Sex: Female
  Weight: 72.6 kg

DRUGS (2)
  1. SYMBICORT [Suspect]
     Indication: ASTHMA
     Dosage: 160 MICROGRAM
     Route: 055
     Dates: start: 20091001
  2. ALBUTEROL [Concomitant]

REACTIONS (9)
  - ASTHENIA [None]
  - CHRONIC FATIGUE SYNDROME [None]
  - CRYING [None]
  - DISTURBANCE IN ATTENTION [None]
  - DYSPHONIA [None]
  - MOOD ALTERED [None]
  - MUSCULAR WEAKNESS [None]
  - OROPHARYNGEAL PAIN [None]
  - TEARFULNESS [None]
